FAERS Safety Report 7452597-5 (Version None)
Quarter: 2011Q2

REPORT INFORMATION
  Report Type: 
  Country: None (occurrence: None)
  Receive Date: 20110502
  Receipt Date: 20100921
  Transmission Date: 20111010
  Serious: Yes (Hospitalization)
  Sender: FDA-Public Use
  Company Number: US-ASTRAZENECA-2010SE44355

PATIENT
  Age: 42 Year
  Sex: Female
  Weight: 68 kg

DRUGS (5)
  1. PERCOCET [Concomitant]
     Indication: BACK PAIN
  2. VICOPROFEN [Concomitant]
     Indication: BACK PAIN
  3. FLOVENT [Concomitant]
     Indication: ASTHMA
  4. NEXIUM [Suspect]
     Indication: DYSPEPSIA
     Route: 048
     Dates: start: 20080101
  5. ALBUTEROL [Concomitant]
     Indication: ASTHMA

REACTIONS (5)
  - DYSPEPSIA [None]
  - INCORRECT DOSE ADMINISTERED [None]
  - ASTHMA [None]
  - DRUG DOSE OMISSION [None]
  - NAUSEA [None]
